FAERS Safety Report 17491887 (Version 1)
Quarter: 2020Q1

REPORT INFORMATION
  Report Type: Spontaneous
  Country: US (occurrence: US)
  Receive Date: 20200303
  Receipt Date: 20200303
  Transmission Date: 20200409
  Serious: No
  Sender: FDA-Public Use
  Company Number: US-NOVOPROD-671210

PATIENT
  Sex: Female

DRUGS (1)
  1. VICTOZA [Suspect]
     Active Substance: LIRAGLUTIDE
     Indication: WEIGHT DECREASED
     Dosage: 1.8 MG
     Route: 058

REACTIONS (4)
  - Inappropriate schedule of product administration [Unknown]
  - Bone pain [Unknown]
  - Gait disturbance [Unknown]
  - Off label use [Unknown]
